APPROVED DRUG PRODUCT: LIDOCAINE HYDROCHLORIDE
Active Ingredient: LIDOCAINE HYDROCHLORIDE
Strength: 20%
Dosage Form/Route: INJECTABLE;INJECTION
Application: A089362 | Product #001
Applicant: ABBOTT LABORATORIES HOSP PRODUCTS DIV
Approved: May 25, 1988 | RLD: No | RS: No | Type: DISCN